FAERS Safety Report 4867947-3 (Version None)
Quarter: 2005Q4

REPORT INFORMATION
  Report Type: 
  Country: None (occurrence: None)
  Receive Date: 20051227
  Receipt Date: 20051216
  Transmission Date: 20060501
  Serious: Yes (Life-Threatening, Hospitalization)
  Sender: FDA-Public Use
  Company Number: 430001E05DEU

PATIENT
  Age: 67 Year
  Sex: Female

DRUGS (3)
  1. NOVANTRONE [Suspect]
     Indication: ACUTE MYELOID LEUKAEMIA
     Dosage: 13 MG
     Dates: start: 20050309, end: 20050313
  2. CYTARABINE [Suspect]
     Indication: ACUTE MYELOID LEUKAEMIA
     Dosage: 185 MG
     Dates: start: 20050309, end: 20050315
  3. ETOPOSIDE [Suspect]
     Indication: ACUTE MYELOID LEUKAEMIA
     Dosage: 185 MG
     Dates: start: 20050309, end: 20050311

REACTIONS (3)
  - HAEMODIALYSIS [None]
  - PNEUMONIA FUNGAL [None]
  - RENAL FAILURE [None]
